FAERS Safety Report 4520517-9 (Version None)
Quarter: 2004Q4

REPORT INFORMATION
  Report Type: 
  Country: None (occurrence: None)
  Receive Date: 20041203
  Receipt Date: 20041122
  Transmission Date: 20050328
  Serious: Yes (Hospitalization)
  Sender: FDA-Public Use
  Company Number: 2004097260

PATIENT
  Age: 31 Year
  Sex: Female
  Weight: 77.1115 kg

DRUGS (2)
  1. DEPO-PROVERA [Suspect]
     Indication: ILL-DEFINED DISORDER
     Dosage: 150 MG (150 MG, FIRST INJECTION) INTRAMUSCULAR
     Route: 030
     Dates: start: 19891108, end: 19891108
  2. DEPO-PROVERA [Suspect]
     Indication: ILL-DEFINED DISORDER
     Dosage: 150 MG (150 MG, FIRST INJECTION) INTRAMUSCULAR
     Route: 030
     Dates: start: 20041104, end: 20041104

REACTIONS (5)
  - AMENORRHOEA [None]
  - BONE DENSITY DECREASED [None]
  - MOUTH CYST [None]
  - TOOTH LOSS [None]
  - TRANSPLANT [None]
